FAERS Safety Report 11199034 (Version 1)
Quarter: 2015Q2

REPORT INFORMATION
  Report Type: Spontaneous
  Country: US (occurrence: US)
  Receive Date: 20150618
  Receipt Date: 20150618
  Transmission Date: 20150821
  Serious: Yes (Hospitalization)
  Sender: FDA-Public Use
  Company Number: US-UCBSA-2015019306

PATIENT
  Age: 74 Year
  Sex: Male

DRUGS (20)
  1. REQUIP [Concomitant]
     Active Substance: ROPINIROLE HYDROCHLORIDE
     Indication: PRODUCT USED FOR UNKNOWN INDICATION
     Dosage: 2 MG, 3X/DAY (TID) (2 MG 2 PILLS)
     Route: 048
     Dates: start: 20121110, end: 20130305
  2. CELEXA [Concomitant]
     Active Substance: CITALOPRAM HYDROBROMIDE
     Indication: PRODUCT USED FOR UNKNOWN INDICATION
     Dosage: 20 MG, ONCE DAILY (QD)
     Route: 048
     Dates: start: 20121219
  3. AZILECT [Concomitant]
     Active Substance: RASAGILINE MESYLATE
     Indication: PRODUCT USED FOR UNKNOWN INDICATION
     Dosage: UNK
  4. LEVOFLOXACIN. [Concomitant]
     Active Substance: LEVOFLOXACIN
     Indication: PRODUCT USED FOR UNKNOWN INDICATION
     Dosage: 500 MG
  5. NITROSTAT [Concomitant]
     Active Substance: NITROGLYCERIN
     Indication: PRODUCT USED FOR UNKNOWN INDICATION
     Dosage: 0.4 MG
  6. ZOSTAVAX [Concomitant]
     Active Substance: VARICELLA-ZOSTER VIRUS STRAIN OKA/MERCK LIVE ANTIGEN
     Indication: PRODUCT USED FOR UNKNOWN INDICATION
     Dosage: 19, 400 UNITS/0.65 ML
     Route: 058
  7. SINEMET [Concomitant]
     Active Substance: CARBIDOPA\LEVODOPA
     Indication: PRODUCT USED FOR UNKNOWN INDICATION
     Dosage: 25/100 AT (7AM, 1 PM, 5 PM AND 8 PM)
     Dates: start: 20121219
  8. CIPROFLOXACIN. [Concomitant]
     Active Substance: CIPROFLOXACIN
     Indication: PRODUCT USED FOR UNKNOWN INDICATION
     Dosage: 250 MG
  9. CIPROFLOXACIN. [Concomitant]
     Active Substance: CIPROFLOXACIN
     Dosage: 500 MG
  10. SINEMET [Concomitant]
     Active Substance: CARBIDOPA\LEVODOPA
     Dosage: 1+1/2 OF 25/100 AT 6 AM, AT 10 AM, 2 PM, 6 PM
     Dates: start: 20130710
  11. AMOXICILLIN TRIHYDRATE AND POTASSIUM CLAVULAN [Concomitant]
     Indication: PRODUCT USED FOR UNKNOWN INDICATION
     Dosage: 875 MG AND 125 MG
  12. NEUPRO [Suspect]
     Active Substance: ROTIGOTINE
     Indication: PARKINSON^S DISEASE
     Dosage: 1 MG, ONCE DAILY (QD)  (IN THE EVENING AT BED TIME)
     Route: 062
     Dates: start: 20121204, end: 201212
  13. ACETAMINOPHEN AND CODEINE [Concomitant]
     Active Substance: ACETAMINOPHEN\CODEINE PHOSPHATE
     Indication: PRODUCT USED FOR UNKNOWN INDICATION
     Dosage: 30 MG TABLET
  14. CELEBREX [Concomitant]
     Active Substance: CELECOXIB
     Indication: PRODUCT USED FOR UNKNOWN INDICATION
     Dosage: 200 MG
  15. NEUPRO [Suspect]
     Active Substance: ROTIGOTINE
     Dosage: 2 MG, ONCE DAILY (QD)
     Route: 062
     Dates: start: 20121219, end: 2013
  16. NEUPRO [Suspect]
     Active Substance: ROTIGOTINE
     Dosage: 4 MG, ONCE DAILY (QD)
     Route: 062
     Dates: start: 20130305
  17. AMANTADINE [Concomitant]
     Active Substance: AMANTADINE
     Indication: PRODUCT USED FOR UNKNOWN INDICATION
     Dosage: 100 MG, (BID/TID)
     Dates: start: 20121219, end: 20130305
  18. REQUIP [Concomitant]
     Active Substance: ROPINIROLE HYDROCHLORIDE
     Dosage: 1 MG, 2X/DAY (BID) (2 PM AND 6 PM)
     Dates: start: 20141201
  19. LISINOPRIL + HIDROCLOROTIAZIDA [Concomitant]
     Active Substance: HYDROCHLOROTHIAZIDE\LISINOPRIL
     Indication: PRODUCT USED FOR UNKNOWN INDICATION
     Dosage: 125 MG + 20 MG
  20. METRONIDAZOLE. [Concomitant]
     Active Substance: METRONIDAZOLE
     Indication: PRODUCT USED FOR UNKNOWN INDICATION
     Dosage: 250 MG

REACTIONS (14)
  - Urinary tract infection [Recovered/Resolved]
  - Speech disorder [Unknown]
  - Restlessness [Unknown]
  - Somnolence [Unknown]
  - Fall [Not Recovered/Not Resolved]
  - Confusional state [Recovered/Resolved]
  - Hallucination [Recovered/Resolved]
  - Resting tremor [Unknown]
  - Cellulitis [Unknown]
  - Anger [Unknown]
  - Depression [Unknown]
  - Arthralgia [Unknown]
  - Sleep disorder [Unknown]
  - Poor quality sleep [Unknown]

NARRATIVE: CASE EVENT DATE: 2013
